FAERS Safety Report 6256051-8 (Version None)
Quarter: 2009Q2

REPORT INFORMATION
  Report Type: 
  Country: None (occurrence: None)
  Receive Date: 20090630
  Receipt Date: 20090630
  Transmission Date: 20091009
  Serious: Yes (Other)
  Sender: FDA-Public Use
  Company Number: None

PATIENT
  Age: 58 Year
  Sex: Male
  Weight: 70.3075 kg

DRUGS (1)
  1. LISINOPRIL [Suspect]
     Indication: PREHYPERTENSION
     Dosage: 1 - 5 MG TABLET DAILY PO
     Route: 048
     Dates: start: 20090611, end: 20090625

REACTIONS (2)
  - DIZZINESS [None]
  - LETHARGY [None]
